FAERS Safety Report 5270572-6 (Version None)
Quarter: 2007Q1

REPORT INFORMATION
  Report Type: 
  Country: None (occurrence: None)
  Receive Date: 20070315
  Receipt Date: 20070302
  Transmission Date: 20070707
  Serious: Yes (Other)
  Sender: FDA-Public Use
  Company Number: 226664

PATIENT
  Age: 78 Year
  Sex: Male
  Weight: 71 kg

DRUGS (5)
  1. EFALIZUMAB (EFALIZUMAB) PWDR + SOLVENT,INJECTION SOLN, 125MG [Suspect]
     Indication: PSORIASIS
     Dosage: 1 MG/KG, 1/WEEK, SUBCUTANEOUS
     Route: 058
     Dates: start: 20050531, end: 20060420
  2. METHOTREXATE [Concomitant]
  3. ADALIMUMAB (ADALIMUMAB) [Concomitant]
  4. LISINOPRIL [Concomitant]
  5. DOXORUBICIN HCL [Concomitant]

REACTIONS (3)
  - HEPATIC NEOPLASM MALIGNANT [None]
  - SPLENOMEGALY [None]
  - VARICES OESOPHAGEAL [None]
